FAERS Safety Report 7738759-8 (Version None)
Quarter: 2011Q3

REPORT INFORMATION
  Report Type: 
  Country: None (occurrence: None)
  Receive Date: 20110908
  Receipt Date: 20110826
  Transmission Date: 20111222
  Serious: Yes (Other)
  Sender: FDA-Public Use
  Company Number: US-RB-027768-11

PATIENT
  Age: 28 Year
  Sex: Female

DRUGS (1)
  1. SUBOXONE [Suspect]
     Indication: PRODUCT USED FOR UNKNOWN INDICATION
     Dosage: DOSING INFORMATION UNKNOWN
     Route: 065

REACTIONS (8)
  - HALLUCINATION [None]
  - AGITATION [None]
  - INSOMNIA [None]
  - TREMOR [None]
  - DRUG WITHDRAWAL SYNDROME [None]
  - DEPRESSION [None]
  - SOCIAL AVOIDANT BEHAVIOUR [None]
  - FEELING ABNORMAL [None]
